FAERS Safety Report 16375210 (Version 1)
Quarter: 2019Q2

REPORT INFORMATION
  Report Type: Spontaneous
  Country: GR (occurrence: GR)
  Receive Date: 20190531
  Receipt Date: 20190531
  Transmission Date: 20190711
  Serious: Yes (Hospitalization, Other)
  Sender: FDA-Public Use
  Company Number: GR-SA-2019SA141128

PATIENT
  Age: 4 Month
  Sex: Female

DRUGS (3)
  1. CEFOTAXIME SODIUM [Suspect]
     Active Substance: CEFOTAXIME SODIUM
     Indication: MENINGITIS MENINGOCOCCAL
     Dosage: UNK
     Route: 042
  2. AMOXICILLIN (SALT NOT SPECIFIED) [Suspect]
     Active Substance: AMOXICILLIN
     Indication: MENINGITIS MENINGOCOCCAL
     Dosage: UNK
  3. CEFOTAXIME SODIUM [Suspect]
     Active Substance: CEFOTAXIME SODIUM
     Dosage: UNK

REACTIONS (7)
  - Vomiting [Recovered/Resolved]
  - Hypotonia [Recovered/Resolved]
  - Rebound effect [Recovered/Resolved]
  - Pyrexia [Recovered/Resolved]
  - Meningitis meningococcal [Recovered/Resolved]
  - Somnolence [Recovered/Resolved]
  - Rhinitis [Recovered/Resolved]
